FAERS Safety Report 10085774 (Version 2)
Quarter: 2014Q2

REPORT INFORMATION
  Report Type: Spontaneous
  Country: IT (occurrence: None)
  Receive Date: 20140416
  Receipt Date: 20140421
  Transmission Date: 20141212
  Serious: No
  Sender: FDA-Public Use
  Company Number: 7269912

PATIENT
  Age: 54 Year
  Sex: Female

DRUGS (1)
  1. EUTIROX [Suspect]
     Indication: PRODUCT USED FOR UNKNOWN INDICATION
     Dates: start: 20130101, end: 20131129

REACTIONS (2)
  - Hypertension [None]
  - Palpitations [None]
